FAERS Safety Report 10174035 (Version 3)
Quarter: 2014Q3

REPORT INFORMATION
  Report Type: Report from Study
  Country: CA (occurrence: CA)
  Receive Date: 20140515
  Receipt Date: 20140722
  Transmission Date: 20150326
  Serious: Yes (Hospitalization)
  Sender: FDA-Public Use
  Company Number: CA-BRISTOL-MYERS SQUIBB COMPANY-20510178

PATIENT
  Age: 54 Year
  Sex: Female

DRUGS (2)
  1. ORENCIA [Suspect]
     Active Substance: ABATACEPT
     Dosage: 1DF:750 UNITS NOS?BATCH NO/EXP DATE -3F76196/MAR2016
     Dates: start: 20090615
  2. METHOTREXATE [Concomitant]
     Active Substance: METHOTREXATE

REACTIONS (4)
  - Chest pain [Recovered/Resolved]
  - Troponin increased [Recovered/Resolved]
  - Dizziness exertional [Recovered/Resolved]
  - Palpitations [Recovered/Resolved]
